FAERS Safety Report 7828617-2 (Version None)
Quarter: 2011Q4

REPORT INFORMATION
  Report Type: 
  Country: None (occurrence: None)
  Receive Date: 20111020
  Receipt Date: 20111014
  Transmission Date: 20120403
  Serious: Yes (Other)
  Sender: FDA-Public Use
  Company Number: US-SANOFI-AVENTIS-2011SA067963

PATIENT
  Sex: Male

DRUGS (1)
  1. PLAVIX [Suspect]
     Route: 065
     Dates: start: 20010101, end: 20110901

REACTIONS (3)
  - ATRIAL FIBRILLATION [None]
  - NECK PAIN [None]
  - MUSCULOSKELETAL STIFFNESS [None]
